FAERS Safety Report 7545887-9 (Version None)
Quarter: 2011Q2

REPORT INFORMATION
  Report Type: 
  Country: None (occurrence: None)
  Receive Date: 20110614
  Receipt Date: 20110606
  Transmission Date: 20111010
  Serious: Yes (Other)
  Sender: FDA-Public Use
  Company Number: US-SANOFI-AVENTIS-2010SA048455

PATIENT
  Age: 69 Year
  Sex: Female

DRUGS (5)
  1. AMBIEN CR [Interacting]
     Indication: SLEEP DISORDER
     Route: 048
     Dates: start: 20100301
  2. AMITRIPTYLINE HYDROCHLORIDE [Interacting]
     Route: 065
  3. GABAPENTIN [Suspect]
     Route: 065
  4. ZOLPIDEM TARTRATE [Suspect]
     Route: 048
  5. ANTIBIOTICS [Interacting]
     Route: 065
     Dates: start: 20110101

REACTIONS (11)
  - CHONDROPATHY [None]
  - BURNING SENSATION [None]
  - ANXIETY [None]
  - TREMOR [None]
  - LIMB INJURY [None]
  - MUSCLE STRAIN [None]
  - DRUG INTERACTION [None]
  - SOMNAMBULISM [None]
  - LOCALISED INFECTION [None]
  - ASTHMA [None]
  - DRUG INEFFECTIVE [None]
